FAERS Safety Report 4698250-2 (Version None)
Quarter: 2005Q2

REPORT INFORMATION
  Report Type: 
  Country: None (occurrence: None)
  Receive Date: 20050623
  Receipt Date: 20050617
  Transmission Date: 20051028
  Serious: Yes (Hospitalization)
  Sender: FDA-Public Use
  Company Number: 200512051FR

PATIENT
  Age: 72 Year
  Sex: Male

DRUGS (4)
  1. ARAVA [Suspect]
     Indication: RHEUMATOID ARTHRITIS
     Route: 048
     Dates: start: 20050101
  2. CORDARONE [Suspect]
     Route: 048
     Dates: end: 20050601
  3. CARDENSIEL [Concomitant]
     Indication: CARDIOMYOPATHY
     Route: 048
  4. PREVISCAN [Concomitant]
     Route: 048
     Dates: end: 20050601

REACTIONS (7)
  - DIARRHOEA [None]
  - FALL [None]
  - HYPERTHYROIDISM [None]
  - MALAISE [None]
  - SUBDURAL HAEMATOMA [None]
  - TREMOR [None]
  - VENTRICULAR TACHYCARDIA [None]
